FAERS Safety Report 6087872-2 (Version None)
Quarter: 2009Q1

REPORT INFORMATION
  Report Type: 
  Country: None (occurrence: None)
  Receive Date: 20090223
  Receipt Date: 20090218
  Transmission Date: 20090719
  Serious: No
  Sender: FDA-Public Use
  Company Number: US-B.I. PHARMACEUTICALS,INC./RIDGEFIELD-2009-BP-02037BP

PATIENT
  Age: 61 Year
  Sex: Male

DRUGS (5)
  1. FLOMAX [Suspect]
     Indication: BENIGN PROSTATIC HYPERPLASIA
     Dosage: .4MG
     Route: 048
     Dates: start: 20090201
  2. CLONAZEPAM [Concomitant]
     Indication: ANXIETY
  3. CARDURA [Concomitant]
     Indication: BENIGN PROSTATIC HYPERPLASIA
  4. LEXAPRO [Concomitant]
     Indication: DEPRESSION
  5. SAW PALMETTO [Concomitant]
     Indication: BENIGN PROSTATIC HYPERPLASIA

REACTIONS (1)
  - DRUG INEFFECTIVE [None]
